FAERS Safety Report 9179078 (Version 1)
Quarter: 2012Q4

REPORT INFORMATION
  Report Type: 
  Country: US (occurrence: US)
  Receive Date: 20121029
  Receipt Date: 20121029
  Transmission Date: 20130627
  Serious: No
  Sender: FDA-Public Use
  Company Number: US-AMGEN-USASP2012052502

PATIENT
  Age: 62 Year
  Sex: Female
  Weight: 72.56 kg

DRUGS (5)
  1. ENBREL [Suspect]
     Indication: PRODUCT USED FOR UNKNOWN INDICATION
     Dosage: 50 mg/ml, qwk
     Route: 058
     Dates: start: 201112
  2. PREVACID FDT [Concomitant]
     Dosage: 30 mg, UNK
  3. ARIMIDEX [Concomitant]
     Dosage: 1 mg, UNK
  4. CRESTOR [Concomitant]
     Dosage: 10 mg, UNK
  5. METHOTREXATE [Concomitant]
     Dosage: 20 mg, UNK

REACTIONS (2)
  - Deep vein thrombosis [Unknown]
  - Eye disorder [Unknown]
